FAERS Safety Report 4677415-X (Version None)
Quarter: 2005Q2

REPORT INFORMATION
  Report Type: 
  Country: None (occurrence: None)
  Receive Date: 20050526
  Receipt Date: 20050504
  Transmission Date: 20051028
  Serious: Yes (Life-Threatening, Hospitalization, Other)
  Sender: FDA-Public Use
  Company Number: HQWYE955911APR05

PATIENT
  Age: 65 Year
  Sex: Female

DRUGS (7)
  1. CORDARONE [Suspect]
     Dosage: 200 MG 2X PER 1 DAY ORAL
     Route: 048
     Dates: end: 20040626
  2. PRAZOSIN HCL [Suspect]
     Dosage: 5 MG 1X PER 1 DAY ORAL
     Route: 048
     Dates: end: 20040626
  3. ATARAX [Suspect]
     Dosage: 25 MG 1X PER 1 DAY ORAL
     Route: 048
     Dates: end: 20040626
  4. LEVOTHYROXINE SODIUM [Suspect]
     Indication: HYPOTHYROIDISM
     Dosage: 150 UG 1X PER 1 DAY ORAL
     Route: 048
     Dates: end: 20040626
  5. NEXIUM [Suspect]
     Dosage: 40 MG 2X PER 1 DAY ORAL
     Route: 048
     Dates: end: 20040626
  6. SODIUM CHLORIDE 0.9% [Suspect]
     Dates: end: 20040626
  7. BISOPROLOL FUMARATE [Suspect]
     Dosage: 10 MG 1X PER 1 DAY ORAL
     Route: 048
     Dates: end: 20040626

REACTIONS (5)
  - CARDIO-RESPIRATORY ARREST [None]
  - HAEMODIALYSIS [None]
  - HYPERKALAEMIA [None]
  - OBSTRUCTION [None]
  - RENAL FAILURE ACUTE [None]
